FAERS Safety Report 8045677-7 (Version None)
Quarter: 2012Q1

REPORT INFORMATION
  Report Type: 
  Country: None (occurrence: None)
  Receive Date: 20120110
  Receipt Date: 20120102
  Transmission Date: 20120608
  Serious: Yes (Other)
  Sender: FDA-Public Use
  Company Number: 2011AP003197

PATIENT
  Age: 49 Year
  Sex: Male

DRUGS (10)
  1. LOSARTAN POTASSIUM [Suspect]
     Indication: HYPERTENSION
     Dosage: 1 DF; QD; PO
     Route: 048
     Dates: start: 20080827, end: 20111225
  2. LORAZEPAM [Concomitant]
  3. GLYCERYL TRINITRATE [Concomitant]
  4. RANOLAZINE [Concomitant]
  5. PANTOPRAZOLE SODIUM [Concomitant]
  6. ISOSORBIDE MONONITRATE [Concomitant]
  7. CYCLOBENZAPRINE [Concomitant]
  8. TRIAMCINOLONE ACETONIDE [Concomitant]
  9. ACETAMINOPHEN [Concomitant]
  10. OXYCODONE HCL [Concomitant]

REACTIONS (3)
  - PURPURA [None]
  - WHITE BLOOD CELL COUNT INCREASED [None]
  - SKIN HAEMORRHAGE [None]
